FAERS Safety Report 6344286-5 (Version None)
Quarter: 2009Q3

REPORT INFORMATION
  Report Type: 
  Country: None (occurrence: None)
  Receive Date: 20090908
  Receipt Date: 20090824
  Transmission Date: 20100115
  Serious: Yes (Other)
  Sender: FDA-Public Use
  Company Number: JP-PFIZER INC-2009260535

PATIENT
  Age: 19 Year

DRUGS (3)
  1. GABAPEN [Suspect]
     Dosage: 1200 MG, 1X/DAY
     Route: 048
  2. ALEVIATIN [Concomitant]
     Dosage: UNK
  3. RIVOTRIL [Concomitant]
     Dosage: UNK

REACTIONS (1)
  - ANTICONVULSANT DRUG LEVEL DECREASED [None]
